FAERS Safety Report 10262807 (Version 2)
Quarter: 2014Q2

REPORT INFORMATION
  Report Type: Report from Study
  Country: US (occurrence: US)
  Receive Date: 20140626
  Receipt Date: 20140626
  Transmission Date: 20141212
  Serious: Yes (Other)
  Sender: FDA-Public Use
  Company Number: US-MYLANLABS-2013S1017400

PATIENT
  Age: 52 Year
  Sex: Male

DRUGS (3)
  1. CLOZAPINE TABLETS [Suspect]
     Indication: SCHIZOPHRENIA
     Route: 048
     Dates: start: 20130626, end: 20130807
  2. ATIVAN [Concomitant]
     Route: 048
     Dates: start: 20130711
  3. BENZTROPINE [Concomitant]
     Dates: start: 20130711

REACTIONS (2)
  - Granulocytopenia [Not Recovered/Not Resolved]
  - Leukopenia [Not Recovered/Not Resolved]
